FAERS Safety Report 6804972-7 (Version None)
Quarter: 2010Q2

REPORT INFORMATION
  Report Type: 
  Country: None (occurrence: None)
  Receive Date: 20100628
  Receipt Date: 20070703
  Transmission Date: 20101027
  Serious: Yes (Other)
  Sender: FDA-Public Use
  Company Number: US-PFIZER INC-2007054743

PATIENT
  Sex: Male
  Weight: 83.9 kg

DRUGS (3)
  1. GEODON [Suspect]
     Indication: MANIA
     Dates: start: 20070702
  2. GEODON [Suspect]
     Indication: DEPRESSION
  3. TRAZODONE HYDROCHLORIDE [Suspect]
     Indication: SLEEP DISORDER
     Dates: start: 20070701

REACTIONS (6)
  - DIABETES MELLITUS [None]
  - DYSARTHRIA [None]
  - DYSPNOEA [None]
  - FEELING DRUNK [None]
  - PANIC REACTION [None]
  - SWOLLEN TONGUE [None]
